FAERS Safety Report 10068872 (Version 2)
Quarter: 2014Q2

REPORT INFORMATION
  Report Type: Spontaneous
  Country: GB (occurrence: GB)
  Receive Date: 20140409
  Receipt Date: 20140516
  Transmission Date: 20141212
  Serious: Yes (Hospitalization, Other)
  Sender: FDA-Public Use
  Company Number: GB-009507513-1404GBR004831

PATIENT
  Sex: Male

DRUGS (2)
  1. GLYCERYL TRINITRATE SPRAY [Suspect]
  2. GLYCERYL TRINITRATE DBL [Suspect]
     Indication: CHEST PAIN
     Route: 060
     Dates: start: 201401, end: 201401

REACTIONS (8)
  - Headache [Recovered/Resolved]
  - Dizziness [Recovered/Resolved]
  - Vision blurred [Recovered/Resolved]
  - Hypoacusis [Recovered/Resolved]
  - Incoherent [Recovered/Resolved]
  - Loss of consciousness [Recovered/Resolved]
  - Cold sweat [Recovered/Resolved]
  - Nausea [Recovered/Resolved]
